FAERS Safety Report 9748347 (Version 2)
Quarter: 2014Q1

REPORT INFORMATION
  Report Type: Report from Study
  Country: US (occurrence: US)
  Receive Date: 20131212
  Receipt Date: 20140130
  Transmission Date: 20141002
  Serious: Yes (Death)
  Sender: FDA-Public Use
  Company Number: US-ASTRAZENECA-2013SE89946

PATIENT
  Age: 42 Year
  Sex: Male
  Weight: 70.1 kg

DRUGS (8)
  1. LISINOPRIL [Suspect]
     Route: 048
  2. BRILINTA [Suspect]
     Indication: CARDIAC DISORDER
     Route: 048
  3. ALDACTONE [Concomitant]
     Dosage: 25 MG, HALF TABLET DAILY
     Route: 048
  4. TORSEMIDE [Concomitant]
     Route: 048
  5. DIGOXIN [Concomitant]
     Route: 048
  6. ASPIRIN [Concomitant]
     Route: 048
  7. PRAVASTATIN [Concomitant]
     Route: 048
  8. ZYBETA [Concomitant]
     Route: 048

REACTIONS (1)
  - Death [Fatal]
